FAERS Safety Report 8766684 (Version 1)
Quarter: 2012Q4

REPORT INFORMATION
  Report Type: 
  Country: US (occurrence: US)
  Receive Date: 20120904
  Receipt Date: 20120904
  Transmission Date: 20130627
  Serious: No
  Sender: FDA-Public Use
  Company Number: US-JNJFOC-20120810312

PATIENT
  Sex: Female
  Weight: 81.65 kg

DRUGS (1)
  1. FENTANYL [Suspect]
     Indication: ENDOMETRIAL CANCER
     Route: 062
     Dates: start: 201207

REACTIONS (4)
  - Wrong technique in drug usage process [Unknown]
  - Inadequate analgesia [Not Recovered/Not Resolved]
  - Product quality issue [Unknown]
  - Product quality issue [Unknown]
